FAERS Safety Report 13297514 (Version 1)
Quarter: 2017Q1

REPORT INFORMATION
  Report Type: Spontaneous
  Country: US (occurrence: US)
  Receive Date: 20170306
  Receipt Date: 20170306
  Transmission Date: 20170428
  Serious: No
  Sender: FDA-Public Use
  Company Number: US-DEPOMED, INC.-US-2016DEP011357

PATIENT

DRUGS (10)
  1. SKELAXINE [Concomitant]
     Active Substance: ACETAMINOPHEN\CHLORZOXAZONE
     Indication: MUSCULOSKELETAL PAIN
     Dosage: 800 MG, TID
     Route: 048
     Dates: start: 201605
  2. GRALISE [Suspect]
     Active Substance: GABAPENTIN
     Indication: NERVE DEGENERATION
     Dosage: 600 MG, QD, TITRATED UP TO 900 MG, QD
     Route: 048
     Dates: start: 20160721, end: 20160722
  3. SKELAXINE [Concomitant]
     Active Substance: ACETAMINOPHEN\CHLORZOXAZONE
     Indication: NECK PAIN
  4. GRALISE [Suspect]
     Active Substance: GABAPENTIN
     Indication: NEURALGIA
     Dosage: 300 MG, QD, TITRATED UP TO 600 MG, QD
     Route: 048
     Dates: start: 20160627, end: 20160628
  5. FLONASE [Concomitant]
     Active Substance: FLUTICASONE PROPIONATE
     Indication: HYPERSENSITIVITY
     Dosage: 200 ?G, BID
     Route: 045
     Dates: start: 201604
  6. DOCUSATE SODIUM. [Concomitant]
     Active Substance: DOCUSATE SODIUM
     Indication: CONSTIPATION
     Dosage: 250 MG, TAKES 2 CAPSULES EACH TIME SHE TAKES PAIN MEDICATION
     Route: 048
     Dates: start: 2011
  7. FISH OIL [Concomitant]
     Active Substance: FISH OIL
     Indication: PROPHYLAXIS
     Dosage: UNK
     Route: 048
  8. NORCO [Concomitant]
     Active Substance: ACETAMINOPHEN\HYDROCODONE BITARTRATE
     Indication: PAIN
     Dosage: 7.5/325 MG 2-4 TIMES A DAY AS NEEDED FOR PAIN
     Route: 048
     Dates: start: 20160627
  9. LORAZEPAM. [Concomitant]
     Active Substance: LORAZEPAM
     Indication: ANXIETY
     Dosage: 1 MG, QD
     Route: 048
  10. PROACTIN [Concomitant]
     Indication: PROPHYLAXIS
     Route: 048

REACTIONS (4)
  - Dizziness [Not Recovered/Not Resolved]
  - Abdominal discomfort [Not Recovered/Not Resolved]
  - Nausea [Not Recovered/Not Resolved]
  - Hypoaesthesia [Recovered/Resolved]

NARRATIVE: CASE EVENT DATE: 20160629
